FAERS Safety Report 15185349 (Version 12)
Quarter: 2021Q4

REPORT INFORMATION
  Report Type: Report from Study
  Country: IT (occurrence: IT)
  Receive Date: 20180723
  Receipt Date: 20211119
  Transmission Date: 20220304
  Serious: Yes (Other)
  Sender: FDA-Public Use
  Company Number: IT-SHIRE-IT201815770

PATIENT
  Age: 69 Year
  Sex: Male
  Weight: 53.968 kg

DRUGS (23)
  1. ANTIHEMOPHILIC FACTOR PORCINE, B-DOMAIN TRUNCATED RECOMBINANT [Suspect]
     Active Substance: ANTIHEMOPHILIC FACTOR PORCINE, B-DOMAIN TRUNCATED RECOMBINANT
     Indication: Acquired haemophilia
     Dosage: 100 INTERNATIONAL UNIT/KILOGRAM
     Route: 042
     Dates: start: 20180220, end: 20180220
  2. ANTIHEMOPHILIC FACTOR PORCINE, B-DOMAIN TRUNCATED RECOMBINANT [Suspect]
     Active Substance: ANTIHEMOPHILIC FACTOR PORCINE, B-DOMAIN TRUNCATED RECOMBINANT
     Indication: Acquired haemophilia
     Dosage: 100 INTERNATIONAL UNIT/KILOGRAM
     Route: 042
     Dates: start: 20180220, end: 20180220
  3. ANTIHEMOPHILIC FACTOR PORCINE, B-DOMAIN TRUNCATED RECOMBINANT [Suspect]
     Active Substance: ANTIHEMOPHILIC FACTOR PORCINE, B-DOMAIN TRUNCATED RECOMBINANT
     Indication: Haemorrhage
     Dosage: 200 INTERNATIONAL UNIT/KILOGRAM
     Route: 042
     Dates: start: 20180221
  4. ANTIHEMOPHILIC FACTOR PORCINE, B-DOMAIN TRUNCATED RECOMBINANT [Suspect]
     Active Substance: ANTIHEMOPHILIC FACTOR PORCINE, B-DOMAIN TRUNCATED RECOMBINANT
     Indication: Haemorrhage
     Dosage: 200 INTERNATIONAL UNIT/KILOGRAM
     Route: 042
     Dates: start: 20180221
  5. FEIBA [Concomitant]
     Active Substance: ANTI-INHIBITOR COAGULANT COMPLEX
     Indication: Haemorrhage
     Dosage: 1000 INTERNATIONAL UNIT, Q12H
     Route: 042
     Dates: start: 20180126, end: 20180322
  6. FEIBA [Concomitant]
     Active Substance: ANTI-INHIBITOR COAGULANT COMPLEX
     Dosage: 2000 INTERNATIONAL UNIT, QD
     Route: 042
     Dates: start: 20180206, end: 20180206
  7. FEIBA [Concomitant]
     Active Substance: ANTI-INHIBITOR COAGULANT COMPLEX
     Dosage: 1000 INTERNATIONAL UNIT, QD
     Route: 042
     Dates: start: 20180207, end: 20180207
  8. FEIBA [Concomitant]
     Active Substance: ANTI-INHIBITOR COAGULANT COMPLEX
     Dosage: 2000 INTERNATIONAL UNIT, QD
     Route: 042
     Dates: start: 20180208, end: 20180320
  9. PROTHROMBIN [Concomitant]
     Active Substance: PROTHROMBIN
     Indication: Haemorrhage
     Dosage: 500 INTERNATIONAL UNIT, QD
     Route: 042
     Dates: start: 20180206, end: 20180218
  10. COAGULATION FACTOR X HUMAN [Concomitant]
     Active Substance: COAGULATION FACTOR X HUMAN
     Dosage: UNK
     Route: 065
  11. COAGULATION FACTOR VII HUMAN [Concomitant]
     Active Substance: COAGULATION FACTOR VII HUMAN
     Dosage: UNK
     Route: 065
  12. COAGULATION FACTOR IX HUMAN [Concomitant]
     Active Substance: COAGULATION FACTOR IX HUMAN
     Dosage: UNK
     Route: 065
  13. RITUXIMAB [Concomitant]
     Active Substance: RITUXIMAB
     Indication: Factor VIII inhibition
     Dosage: 500 MILLIGRAM, 1/WEEK
     Route: 042
     Dates: start: 20180209, end: 20180306
  14. RITUXIMAB [Concomitant]
     Active Substance: RITUXIMAB
     Indication: Immunosuppression
  15. EPTACOG ALFA [Concomitant]
     Active Substance: COAGULATION FACTOR VIIA RECOMBINANT HUMAN
     Indication: Haemorrhage
     Dosage: 12 MILLIGRAM, QID
     Route: 042
     Dates: start: 20180131, end: 20180209
  16. CYCLOPHOSPHAMIDE [Concomitant]
     Active Substance: CYCLOPHOSPHAMIDE
     Indication: Factor VIII inhibition
     Dosage: 50 MILLILITER, Q2WEEKS
     Route: 048
     Dates: start: 20180314
  17. PREDNISONE [Concomitant]
     Active Substance: PREDNISONE
     Indication: Immunosuppression
     Route: 065
  18. PANTOPRAZOLE [Concomitant]
     Active Substance: PANTOPRAZOLE
     Indication: Prophylaxis against gastrointestinal ulcer
     Dosage: 40 MILLIGRAM, QD
     Route: 048
  19. INSULIN LISPRO [Concomitant]
     Active Substance: INSULIN LISPRO
     Indication: Diabetes mellitus
     Dosage: 24 INTERNATIONAL UNIT, QD
     Route: 058
     Dates: start: 20180126
  20. FUROSEMIDE [Concomitant]
     Active Substance: FUROSEMIDE
     Dosage: UNK
     Route: 065
  21. PREDNISONE [Concomitant]
     Active Substance: PREDNISONE
     Indication: Factor VIII inhibition
     Dosage: 25 MILLIGRAM, QD
     Route: 048
     Dates: start: 20180131, end: 20180221
  22. CYCLOPHOSPHAMIDE [Concomitant]
     Active Substance: CYCLOPHOSPHAMIDE
     Indication: Factor VIII inhibition
     Dosage: 50 MILLIGRAM, QOD
     Route: 048
     Dates: start: 20180314
  23. LASIX [Concomitant]
     Active Substance: FUROSEMIDE
     Indication: Prophylaxis
     Dosage: 40 MILLIGRAM, QD
     Route: 042
     Dates: start: 20180131, end: 20180207

REACTIONS (5)
  - Therapy non-responder [Unknown]
  - Inhibiting antibodies [Unknown]
  - Intestinal obstruction [Recovered/Resolved]
  - Haematoma [Recovered/Resolved]
  - Underdose [Recovered/Resolved]

NARRATIVE: CASE EVENT DATE: 20180220
